FAERS Safety Report 22349432 (Version 1)
Quarter: 2023Q2

REPORT INFORMATION
  Report Type: Spontaneous
  Country: NO (occurrence: NO)
  Receive Date: 20230522
  Receipt Date: 20230522
  Transmission Date: 20230722
  Serious: Yes (Other)
  Sender: FDA-Public Use
  Company Number: NO-TEVA-2023-NO-2889429

PATIENT
  Age: 39 Year
  Sex: Female

DRUGS (2)
  1. PROGESTERONE [Suspect]
     Active Substance: PROGESTERONE
     Indication: In vitro fertilisation
     Route: 065
     Dates: start: 20230320, end: 20230404
  2. GONAL-F [Suspect]
     Active Substance: FOLLITROPIN
     Indication: In vitro fertilisation
     Dosage: (375 IU 1 IN 1 D)
     Route: 065
     Dates: start: 20230309, end: 20230317

REACTIONS (2)
  - Breast pain [Recovering/Resolving]
  - Mastitis bacterial [Recovering/Resolving]

NARRATIVE: CASE EVENT DATE: 20230416
